FAERS Safety Report 15080379 (Version 3)
Quarter: 2018Q3

REPORT INFORMATION
  Report Type: Spontaneous
  Country: CH (occurrence: CH)
  Receive Date: 20180628
  Receipt Date: 20180807
  Transmission Date: 20181010
  Serious: No
  Sender: FDA-Public Use
  Company Number: PHHY2018CH011144

PATIENT
  Sex: Female

DRUGS (8)
  1. BILASTINUM [Concomitant]
     Indication: PRODUCT USED FOR UNKNOWN INDICATION
     Dosage: 20 MG, QD (AS NEEDED)
     Route: 048
  2. IMODIUM [Concomitant]
     Active Substance: LOPERAMIDE HYDROCHLORIDE
     Indication: PRODUCT USED FOR UNKNOWN INDICATION
     Dosage: 2 MG, PRN (AS NEEDED)
     Route: 048
  3. RYDAPT [Suspect]
     Active Substance: MIDOSTAURIN
     Indication: SYSTEMIC MASTOCYTOSIS
     Dosage: 2 DF, BID
     Route: 065
     Dates: start: 20180104
  4. STUGERON [Concomitant]
     Active Substance: CINNARIZINE
     Indication: DIZZINESS
     Dosage: 25 MG, PRN (AS NEEDED)
     Route: 048
  5. NALCROM [Concomitant]
     Active Substance: CROMOLYN SODIUM
     Indication: PRODUCT USED FOR UNKNOWN INDICATION
     Dosage: 150 MG, BID4SDO (2?2?2?2)
     Route: 065
  6. PASPERTIN [Concomitant]
     Indication: PRODUCT USED FOR UNKNOWN INDICATION
     Dosage: 10 MG, AS NEEDED UPTO 6 TIMES A DAY
     Route: 048
  7. RYDAPT [Suspect]
     Active Substance: MIDOSTAURIN
     Dosage: 1 DF, QD
     Route: 065
  8. RANITIDIN [Concomitant]
     Active Substance: RANITIDINE HYDROCHLORIDE
     Indication: PRODUCT USED FOR UNKNOWN INDICATION
     Dosage: 150 MG, BID
     Route: 048

REACTIONS (3)
  - Panic attack [Unknown]
  - Anxiety [Unknown]
  - Thinking abnormal [Unknown]
